FAERS Safety Report 25166722 (Version 2)
Quarter: 2025Q2

REPORT INFORMATION
  Report Type: Spontaneous
  Country: US (occurrence: US)
  Receive Date: 20250407
  Receipt Date: 20250410
  Transmission Date: 20250716
  Serious: Yes (Hospitalization)
  Sender: WAYLIS THERAPEUTICS
  Company Number: US-WAYLIS-2025-US-016820

PATIENT
  Age: 87 Year
  Sex: Male

DRUGS (23)
  1. CARVEDILOL [Suspect]
     Active Substance: CARVEDILOL
     Indication: Product used for unknown indication
     Route: 048
  2. FINASTERIDE [Concomitant]
     Active Substance: FINASTERIDE
  3. GABAPENTIN [Concomitant]
     Active Substance: GABAPENTIN
  4. ATORVASTATIN CALCIUM [Concomitant]
     Active Substance: ATORVASTATIN CALCIUM
  5. MELOXICAM [Concomitant]
     Active Substance: MELOXICAM
  6. METOPROLOL SUCCINATE [Concomitant]
     Active Substance: METOPROLOL SUCCINATE
  7. MONTELUKAST [Concomitant]
     Active Substance: MONTELUKAST
  8. VITAMINS [Concomitant]
     Active Substance: VITAMINS
  9. NITROGLYCERIN [Concomitant]
     Active Substance: NITROGLYCERIN
  10. POTASSIUM CHLORIDE [Concomitant]
     Active Substance: POTASSIUM CHLORIDE
  11. PREDNISONE [Concomitant]
     Active Substance: PREDNISONE
  12. ORGOVYX [Suspect]
     Active Substance: RELUGOLIX
     Route: 048
     Dates: start: 202501
  13. MINERALS\VITAMINS [Concomitant]
     Active Substance: MINERALS\VITAMINS
  14. TAMSULOSIN [Concomitant]
     Active Substance: TAMSULOSIN
  15. VITAMIN D [Concomitant]
     Active Substance: VITAMIN D NOS
  16. ENZALUTAMIDE [Concomitant]
     Active Substance: ENZALUTAMIDE
  17. ALBUTEROL SULFATE [Concomitant]
     Active Substance: ALBUTEROL SULFATE
  18. ASPIRIN [Concomitant]
     Active Substance: ASPIRIN
  19. BUMETANIDE [Concomitant]
     Active Substance: BUMETANIDE
  20. COENZYME Q10 [Concomitant]
     Active Substance: DIETARY SUPPLEMENT\UBIDECARENONE
  21. SACUBITRIL [Concomitant]
     Active Substance: SACUBITRIL
  22. VALSARTAN [Concomitant]
     Active Substance: VALSARTAN
  23. FAMOTIDINE [Concomitant]
     Active Substance: FAMOTIDINE

REACTIONS (7)
  - Gastroenteritis viral [Unknown]
  - Hypoacusis [Unknown]
  - Heart rate decreased [Unknown]
  - Drug interaction [Unknown]
  - Dizziness [Unknown]
  - Asthenia [Unknown]
  - Product dose omission issue [Unknown]
